FAERS Safety Report 13387323 (Version 1)
Quarter: 2017Q1

REPORT INFORMATION
  Report Type: Report from Study
  Country: CO (occurrence: CO)
  Receive Date: 20170330
  Receipt Date: 20170330
  Transmission Date: 20170429
  Serious: Yes (Hospitalization)
  Sender: FDA-Public Use
  Company Number: CO-EMD SERONO-E2B_80063006

PATIENT
  Age: 5 Year
  Sex: Female

DRUGS (1)
  1. SAIZEN [Suspect]
     Active Substance: SOMATROPIN
     Indication: PRODUCT USED FOR UNKNOWN INDICATION
     Dosage: 0.7 (UNITS UNSPECIFIED)
     Dates: start: 20170301

REACTIONS (5)
  - Headache [Unknown]
  - Drug administered in wrong device [Unknown]
  - Somnolence [Unknown]
  - Vomiting [Unknown]
  - Overdose [Unknown]

NARRATIVE: CASE EVENT DATE: 201703
